FAERS Safety Report 24232635 (Version 1)
Quarter: 2024Q3

REPORT INFORMATION
  Report Type: Spontaneous
  Country: GB (occurrence: GB)
  Receive Date: 20240821
  Receipt Date: 20240821
  Transmission Date: 20241017
  Serious: Yes (Other)
  Sender: PFIZER
  Company Number: GB-MHRA-WEBRADR-202408191751408670-HMWGD

PATIENT
  Age: 54 Year
  Sex: Female

DRUGS (1)
  1. SULFASALAZINE [Suspect]
     Active Substance: SULFASALAZINE
     Indication: Rheumatoid arthritis
     Dosage: 500 MG
     Route: 048
     Dates: start: 20240708, end: 20240723

REACTIONS (6)
  - Rash [Recovered/Resolved with Sequelae]
  - Mouth ulceration [Unknown]
  - Rash pruritic [Unknown]
  - Dizziness [Unknown]
  - COVID-19 [Recovered/Resolved]
  - Nasopharyngitis [Unknown]

NARRATIVE: CASE EVENT DATE: 20240701
